FAERS Safety Report 9153604 (Version 1)
Quarter: 2013Q1

REPORT INFORMATION
  Report Type: Spontaneous
  Country: IT (occurrence: None)
  Receive Date: 20130205
  Receipt Date: 20130205
  Transmission Date: 20140127
  Serious: Yes (Other)
  Sender: FDA-Public Use
  Company Number: AUR-APL-2013-01043

PATIENT
  Age: 89 Year
  Sex: Female

DRUGS (6)
  1. GABAPENTIN (GABAPENTIN) [Suspect]
     Indication: PRODUCT USED FOR UNKNOWN INDICATION
     Route: 048
     Dates: start: 20120101, end: 20121215
  2. OXYCONTIN (OXYCODONE HYDROCHLORIDE) [Suspect]
     Indication: PRODUCT USED FOR UNKNOWN INDICATION
     Route: 048
     Dates: start: 20120101, end: 20121215
  3. LEXOTAN (BROMAZEPAM) [Concomitant]
  4. KARVEZIDE (KARVEA HCT) [Concomitant]
  5. HALCION (TRIAZOLAM) [Concomitant]
  6. PANTOPRAZOLE SODIUM (PANTOPRAZOLE SODIUM) [Concomitant]

REACTIONS (3)
  - Abdominal pain [None]
  - Faecaloma [None]
  - Abdominal distension [None]
